FAERS Safety Report 5794896-9 (Version None)
Quarter: 2008Q2

REPORT INFORMATION
  Report Type: 
  Country: None (occurrence: None)
  Receive Date: 20080626
  Receipt Date: 20080613
  Transmission Date: 20081010
  Serious: Yes (Other)
  Sender: FDA-Public Use
  Company Number: VNL_01145_2008

PATIENT
  Age: 77 Year
  Sex: Male

DRUGS (3)
  1. APO-GO (APO-GO AMPOULES 10 MG/ML SOLUTION FOR INJECTION - APOMORPHINE [Suspect]
     Indication: PARKINSON'S DISEASE
     Dosage: (DF FOR 52 WEEKS SUBCUTANEOUS)
     Route: 058
     Dates: start: 20070101, end: 20080501
  2. SINEMET [Concomitant]
  3. ROTIGOTINE [Concomitant]

REACTIONS (1)
  - HAEMOLYTIC ANAEMIA [None]
